FAERS Safety Report 9830056 (Version 2)
Quarter: 2014Q1

REPORT INFORMATION
  Report Type: Spontaneous
  Country: US (occurrence: US)
  Receive Date: 20140120
  Receipt Date: 20140307
  Transmission Date: 20141002
  Serious: No
  Sender: FDA-Public Use
  Company Number: US-009507513-1401USA002291

PATIENT
  Age: 21 Year
  Sex: Female
  Weight: 65.76 kg

DRUGS (1)
  1. IMPLANON [Suspect]
     Indication: CONTRACEPTION
     Dosage: UNK, EVERY THREE YEARS, ONE ROD
     Route: 059
     Dates: start: 201304

REACTIONS (9)
  - Suicidal ideation [Unknown]
  - Menorrhagia [Unknown]
  - Weight increased [Unknown]
  - Depression [Unknown]
  - Implant site hypoaesthesia [Unknown]
  - Tendonitis [Unknown]
  - Pain [Unknown]
  - Bone pain [Unknown]
  - Arthropathy [Unknown]
